FAERS Safety Report 9713484 (Version 2)
Quarter: 2013Q4

REPORT INFORMATION
  Report Type: Report from Study
  Country: US (occurrence: US)
  Receive Date: 20131126
  Receipt Date: 20131218
  Transmission Date: 20140711
  Serious: Yes (Other)
  Sender: FDA-Public Use
  Company Number: US-TEVA-446854USA

PATIENT
  Age: 26 Year
  Sex: Female

DRUGS (3)
  1. CLARAVIS [Suspect]
     Dosage: 60 MILLIGRAM DAILY;
     Dates: start: 201307, end: 20131030
  2. NUVARING [Concomitant]
  3. LEVONORGESTREL [Concomitant]
     Dates: start: 20131101

REACTIONS (1)
  - Unintended pregnancy [Recovered/Resolved]
